FAERS Safety Report 8334341-2 (Version None)
Quarter: 2012Q2

REPORT INFORMATION
  Report Type: 
  Country: None (occurrence: None)
  Receive Date: 20120503
  Receipt Date: 20120502
  Transmission Date: 20120825
  Serious: Yes (Hospitalization)
  Sender: FDA-Public Use
  Company Number: HK-ROCHE-1051295

PATIENT
  Sex: Male
  Weight: 45.8 kg

DRUGS (29)
  1. XELODA [Suspect]
     Indication: NASOPHARYNGEAL CANCER
     Dosage: LAST DOSE PRIOR TO SAE: 09/FEB/2012
     Route: 048
     Dates: start: 20120127
  2. CHLORPHENIRAMINE MALEATE [Concomitant]
     Dates: start: 20120130
  3. DILTIAZEM [Concomitant]
     Dates: start: 20120224
  4. FAMOTIDINE [Concomitant]
     Dates: start: 20120130
  5. FAMOTIDINE [Concomitant]
     Dates: start: 20120224
  6. ENZYPLEX (HONG KONG) [Concomitant]
     Dates: start: 20120130
  7. PARAFFIN [Concomitant]
     Dates: start: 20110226
  8. CARBOPLATIN [Suspect]
     Indication: NASOPHARYNGEAL CANCER
     Route: 042
     Dates: start: 20120305, end: 20120417
  9. FLUTICASONE FUROATE [Concomitant]
     Dates: start: 20120224
  10. ALBUTEROL [Concomitant]
     Dates: start: 20120402
  11. CLOTRIMAZOLE [Concomitant]
     Dates: start: 20120417
  12. COCILLANA [Concomitant]
     Dates: start: 20120323
  13. CLOTRIMAZOLE [Concomitant]
     Dates: start: 20120130
  14. CLOTRIMAZOLE [Concomitant]
     Dates: start: 20120224
  15. ALBUTEROL [Concomitant]
     Dates: start: 20120224
  16. SALMETEROL [Concomitant]
     Dates: start: 20120130
  17. CODEINE [Concomitant]
     Dates: start: 20110226
  18. CHLORPHENIRAMINE MALEATE [Concomitant]
     Dates: start: 20120301
  19. ALBUTEROL [Concomitant]
     Dates: start: 20120130
  20. METOCLOPRAMIDE [Concomitant]
     Dates: start: 20110226
  21. COCILLANA [Concomitant]
     Dates: start: 20120130
  22. PYRIDOXINE HCL [Concomitant]
     Dates: start: 20120226
  23. CISPLATIN [Suspect]
     Indication: NASOPHARYNGEAL CANCER
     Dosage: LAST DOSE PRIOR TO SAE: 28/JAN/2012
     Route: 042
     Dates: start: 20120127
  24. ACETYLCYSTEINE [Concomitant]
     Dates: start: 20120224
  25. SALMETEROL [Concomitant]
     Dates: start: 20120224
  26. FLUTICASONE FUROATE [Concomitant]
     Dates: start: 20120130
  27. TIOTROPIUM [Concomitant]
     Dates: start: 20111230
  28. TIOTROPIUM [Concomitant]
     Dates: start: 20120224
  29. METOCLOPRAMIDE [Concomitant]
     Dates: start: 20120412

REACTIONS (3)
  - WEIGHT DECREASED [None]
  - CHRONIC OBSTRUCTIVE PULMONARY DISEASE [None]
  - MUCOSAL INFLAMMATION [None]
